FAERS Safety Report 18074273 (Version 3)
Quarter: 2020Q4

REPORT INFORMATION
  Report Type: Spontaneous
  Country: US (occurrence: US)
  Receive Date: 20200727
  Receipt Date: 20201214
  Transmission Date: 20210113
  Serious: No
  Sender: FDA-Public Use
  Company Number: US-PFIZER INC-2020282560

PATIENT
  Age: 68 Year
  Sex: Male
  Weight: 106.59 kg

DRUGS (2)
  1. TOVIAZ [Suspect]
     Active Substance: FESOTERODINE FUMARATE
     Indication: PROSTATE CANCER
     Dosage: 4 MG, DAILY
     Route: 048
  2. TOVIAZ [Suspect]
     Active Substance: FESOTERODINE FUMARATE
     Indication: ERECTILE DYSFUNCTION

REACTIONS (1)
  - Off label use [Unknown]
